FAERS Safety Report 21429873 (Version 1)
Quarter: 2022Q4

REPORT INFORMATION
  Report Type: Spontaneous
  Country: US (occurrence: US)
  Receive Date: 20221009
  Receipt Date: 20221009
  Transmission Date: 20230112
  Serious: Yes (Other)
  Sender: FDA-Public Use
  Company Number: US-PURDUE-USA-2020-0230949

PATIENT
  Sex: Male

DRUGS (11)
  1. DILAUDID [Suspect]
     Active Substance: HYDROMORPHONE HYDROCHLORIDE
     Indication: Pain
     Dosage: UNKNOWN
     Route: 048
  2. HYDROCODONE BITARTRATE AND ACETAMINOPHEN [Suspect]
     Active Substance: ACETAMINOPHEN\HYDROCODONE BITARTRATE
     Indication: Pain
     Dosage: UNKNOWN
     Route: 048
  3. ACETAMINOPHEN\OXYCODONE HYDROCHLORIDE [Suspect]
     Active Substance: ACETAMINOPHEN\OXYCODONE HYDROCHLORIDE
     Indication: Pain
     Dosage: UNKNOWN
     Route: 048
  4. COUGH SYRUP [Suspect]
     Active Substance: DEXTROMETHORPHAN HYDROBROMIDE\GUAIFENESIN
     Indication: Pain
     Dosage: UNKNOWN
     Route: 065
  5. MORPHINE [Suspect]
     Active Substance: MORPHINE
     Indication: Limb injury
     Dosage: UNKNOWN
     Route: 065
     Dates: start: 1983
  6. MORPHINE [Suspect]
     Active Substance: MORPHINE
     Indication: Pain
  7. TYLENOL WITH CODEINE [Suspect]
     Active Substance: ACETAMINOPHEN\CODEINE PHOSPHATE
     Indication: Tooth extraction
     Dosage: UNKNOWN
     Route: 065
     Dates: start: 1987
  8. TYLENOL WITH CODEINE [Suspect]
     Active Substance: ACETAMINOPHEN\CODEINE PHOSPHATE
     Indication: Pain
  9. VICODIN [Suspect]
     Active Substance: ACETAMINOPHEN\HYDROCODONE BITARTRATE
     Indication: Dental operation
     Dosage: 500 MG, UNKNOWN
     Route: 065
     Dates: start: 1990
  10. VICODIN [Suspect]
     Active Substance: ACETAMINOPHEN\HYDROCODONE BITARTRATE
     Indication: Joint injury
     Dosage: 750 MG, UNKNOWN
     Route: 065
     Dates: start: 1993
  11. VICODIN [Suspect]
     Active Substance: ACETAMINOPHEN\HYDROCODONE BITARTRATE
     Indication: Pain
     Dosage: 750 MG, UNKNOWN
     Route: 065
     Dates: start: 1996

REACTIONS (1)
  - Drug dependence [Unknown]
